FAERS Safety Report 5471744-8 (Version None)
Quarter: 2007Q3

REPORT INFORMATION
  Report Type: 
  Country: None (occurrence: None)
  Receive Date: 20070928
  Receipt Date: 20070502
  Transmission Date: 20080115
  Serious: No
  Sender: FDA-Public Use
  Company Number: US-BRISTOL-MYERS SQUIBB COMPANY-13767116

PATIENT
  Age: 61 Year
  Sex: Male

DRUGS (5)
  1. DEFINITY [Suspect]
     Indication: CARDIAC STRESS TEST
  2. METFORMIN [Concomitant]
  3. LOVASTATIN [Concomitant]
  4. LEVOTHYROXINE SODIUM [Concomitant]
  5. ASPIRIN [Concomitant]

REACTIONS (1)
  - RASH [None]
